FAERS Safety Report 13551437 (Version 8)
Quarter: 2018Q3

REPORT INFORMATION
  Report Type: Spontaneous
  Country: CA (occurrence: CA)
  Receive Date: 20170516
  Receipt Date: 20180807
  Transmission Date: 20181010
  Serious: Yes (Death, Hospitalization, Other)
  Sender: FDA-Public Use
  Company Number: CA-PFIZER INC-2017007321

PATIENT
  Age: 74 Year
  Sex: Male

DRUGS (2)
  1. XELJANZ [Suspect]
     Active Substance: TOFACITINIB CITRATE
     Dosage: 5 MG, 2X/DAY
     Route: 048
     Dates: start: 201709, end: 2018
  2. XELJANZ [Suspect]
     Active Substance: TOFACITINIB CITRATE
     Indication: RHEUMATOID ARTHRITIS
     Dosage: 5 MG, 2X/DAY
     Route: 048
     Dates: start: 20161223

REACTIONS (12)
  - Dysstasia [Not Recovered/Not Resolved]
  - Renal impairment [Not Recovered/Not Resolved]
  - Pneumonia [Recovered/Resolved]
  - Death [Fatal]
  - Urinary bladder polyp [Unknown]
  - Cystitis [Unknown]
  - Bladder cancer [Unknown]
  - Sepsis [Recovered/Resolved]
  - Cystitis [Recovered/Resolved]
  - Arthropathy [Not Recovered/Not Resolved]
  - Pain in extremity [Unknown]
  - Pain [Unknown]

NARRATIVE: CASE EVENT DATE: 20170510
